FAERS Safety Report 25314216 (Version 1)
Quarter: 2025Q2

REPORT INFORMATION
  Report Type: Spontaneous
  Country: US (occurrence: US)
  Receive Date: 20250514
  Receipt Date: 20250514
  Transmission Date: 20250717
  Serious: No
  Sender: JOHNSON AND JOHNSON
  Company Number: US-JNJFOC-20250510128

PATIENT

DRUGS (1)
  1. LAZCLUZE [Suspect]
     Active Substance: LAZERTINIB
     Indication: Lung neoplasm malignant
     Route: 065
     Dates: start: 20250501

REACTIONS (2)
  - Rash [Unknown]
  - Acne [Unknown]
